FAERS Safety Report 4601747-4 (Version None)
Quarter: 2005Q1

REPORT INFORMATION
  Report Type: 
  Country: None (occurrence: None)
  Receive Date: 20050131
  Receipt Date: 20041214
  Transmission Date: 20050727
  Serious: No
  Sender: FDA-Public Use
  Company Number: 200419587US

PATIENT
  Age: 59 Year
  Sex: Female

DRUGS (2)
  1. TELITHROMYCIN (KETEK) TABLETS [Suspect]
     Indication: BRONCHITIS
     Dosage: 400 MG ONCE PO
     Route: 048
     Dates: start: 20041213, end: 20041213
  2. NAPROXEN SODIUM (ALEVE) [Concomitant]

REACTIONS (3)
  - HEADACHE [None]
  - MUSCLE SPASMS [None]
  - VOMITING PROJECTILE [None]
